FAERS Safety Report 9718392 (Version 1)
Quarter: 2013Q4

REPORT INFORMATION
  Report Type: Not Available
  Country: US (occurrence: US)
  Receive Date: 20131125
  Receipt Date: 20131125
  Transmission Date: 20140711
  Serious: No
  Sender: FDA-Public Use
  Company Number: US-VIVUS-2013V1000580

PATIENT
  Age: 67 Year
  Sex: Female
  Weight: 107.6 kg

DRUGS (6)
  1. QSYMIA 7.5MG/46MG [Suspect]
     Indication: WEIGHT DECREASED
     Route: 048
     Dates: start: 201307, end: 201307
  2. QSYMIA 3.75MG/23MG [Suspect]
     Indication: WEIGHT DECREASED
     Route: 048
     Dates: start: 201307, end: 201307
  3. GLYBURIDE [Concomitant]
     Indication: DIABETES MELLITUS
     Dosage: STARTED YEARS AGO
     Route: 048
  4. IRBESARTAN [Concomitant]
     Indication: PRODUCT USED FOR UNKNOWN INDICATION
     Dosage: STARTED 5 YEARS AGO
     Route: 048
     Dates: start: 2008
  5. SYNTHROID [Concomitant]
     Indication: HYPOTHYROIDISM
     Dosage: STARTED 20 YEARS AGO
     Route: 048
     Dates: start: 1993
  6. PRAVASTATIN [Concomitant]
     Indication: BLOOD CHOLESTEROL INCREASED
     Dosage: STARTED 8 YEARS AGO
     Route: 048
     Dates: start: 2005

REACTIONS (2)
  - Cataract [Unknown]
  - Eye pain [Recovered/Resolved]
